FAERS Safety Report 10151478 (Version 2)
Quarter: 2014Q2

REPORT INFORMATION
  Report Type: Report from Study
  Country: US (occurrence: US)
  Receive Date: 20140502
  Receipt Date: 20140620
  Transmission Date: 20141212
  Serious: Yes (Hospitalization, Other)
  Sender: FDA-Public Use
  Company Number: US-ABBVIE-14P-163-1229323-00

PATIENT
  Age: 60 Year
  Sex: Female
  Weight: 69.46 kg

DRUGS (14)
  1. HUMIRA [Suspect]
     Indication: COLITIS ULCERATIVE
     Route: 058
     Dates: start: 20140322, end: 20140322
  2. HUMIRA [Suspect]
     Route: 058
     Dates: start: 20140405, end: 20140405
  3. HUMIRA [Suspect]
     Route: 058
     Dates: start: 20140421
  4. ASACOL [Concomitant]
     Indication: COLITIS ULCERATIVE
  5. NEXIUM [Concomitant]
     Indication: GASTROOESOPHAGEAL REFLUX DISEASE
  6. TRIAMTERENE/HCTZ [Concomitant]
     Indication: FLUID RETENTION
  7. XARELTO [Concomitant]
     Indication: THROMBOSIS PROPHYLAXIS
  8. TRAZODONE [Concomitant]
     Indication: INSOMNIA
  9. ZOFRAN [Concomitant]
     Indication: NAUSEA
  10. NITROGLYCERIN [Concomitant]
     Indication: CHEST PAIN
  11. ALBUTEROL SULFATE [Concomitant]
     Indication: PRODUCT USED FOR UNKNOWN INDICATION
  12. CALCIUM [Concomitant]
     Indication: PRODUCT USED FOR UNKNOWN INDICATION
  13. BIOTIN [Concomitant]
     Indication: PRODUCT USED FOR UNKNOWN INDICATION
     Dosage: DAILY
  14. VITAMIN D3 [Concomitant]
     Indication: PRODUCT USED FOR UNKNOWN INDICATION

REACTIONS (6)
  - Coagulation factor VIII level increased [Recovering/Resolving]
  - Chest discomfort [Recovering/Resolving]
  - Injection site pain [Recovering/Resolving]
  - Headache [Recovering/Resolving]
  - Sputum discoloured [Recovering/Resolving]
  - Haemoptysis [Recovering/Resolving]
